FAERS Safety Report 13349972 (Version 1)
Quarter: 2017Q1

REPORT INFORMATION
  Report Type: Spontaneous
  Country: US (occurrence: US)
  Receive Date: 20170319
  Receipt Date: 20170319
  Transmission Date: 20170429
  Serious: Yes (Other)
  Sender: FDA-Public Use
  Company Number: None

PATIENT
  Age: 60 Year
  Sex: Female
  Weight: 72.9 kg

DRUGS (11)
  1. ZOCARE [Concomitant]
     Active Substance: OFLOXACIN
  2. WOMEN MULTIVITAMIN [Concomitant]
  3. HUMIRA [Suspect]
     Active Substance: ADALIMUMAB
     Indication: COLITIS ULCERATIVE
     Dosage: QUANTITY:2016 INJECTION(S);OTHER FREQUENCY:EVER TWO WEEKS;?
     Route: 058
     Dates: start: 20160101, end: 20161101
  4. ADVAR [Concomitant]
  5. PROBIOTIC [Concomitant]
     Active Substance: PROBIOTICS NOS
  6. BAYER ASPIRIN [Concomitant]
     Active Substance: ASPIRIN
  7. VITAMIN D [Concomitant]
     Active Substance: CHOLECALCIFEROL
  8. LIALDA [Concomitant]
     Active Substance: MESALAMINE
  9. SINGULAIR [Concomitant]
     Active Substance: MONTELUKAST SODIUM
  10. VITAMIN B12 [Concomitant]
     Active Substance: CYANOCOBALAMIN
  11. ALLERGY PILL [Concomitant]
     Active Substance: UNSPECIFIED INGREDIENT

REACTIONS (3)
  - Viral infection [None]
  - Psoriasis [None]
  - Scar [None]

NARRATIVE: CASE EVENT DATE: 20161201
